FAERS Safety Report 8464671-5 (Version None)
Quarter: 2012Q2

REPORT INFORMATION
  Report Type: 
  Country: None (occurrence: None)
  Receive Date: 20120626
  Receipt Date: 20120614
  Transmission Date: 20120825
  Serious: Yes (Other)
  Sender: FDA-Public Use
  Company Number: CA-JNJFOC-20120607561

PATIENT
  Sex: Male
  Weight: 78.1 kg

DRUGS (3)
  1. REMICADE [Suspect]
     Indication: CROHN'S DISEASE
     Route: 042
  2. REMICADE [Suspect]
     Route: 042
     Dates: start: 20120518
  3. METHOTREXATE [Concomitant]
     Dosage: 6 TABLETS
     Route: 048

REACTIONS (9)
  - PARAESTHESIA [None]
  - ABDOMINAL DISTENSION [None]
  - HAEMORRHAGE [None]
  - SKIN ULCER [None]
  - NECK PAIN [None]
  - ABDOMINAL PAIN [None]
  - VISUAL IMPAIRMENT [None]
  - HEADACHE [None]
  - HYPOAESTHESIA [None]
